FAERS Safety Report 6802879-2 (Version None)
Quarter: 2010Q2

REPORT INFORMATION
  Report Type: 
  Country: None (occurrence: None)
  Receive Date: 20100628
  Receipt Date: 20100618
  Transmission Date: 20101027
  Serious: Yes (Disabling, Other)
  Sender: FDA-Public Use
  Company Number: GB-BAYER-201025187GPV

PATIENT
  Age: 57 Year
  Sex: Female

DRUGS (1)
  1. BETAFERON [Suspect]
     Indication: MULTIPLE SCLEROSIS
     Dosage: 8MIU
     Route: 058
     Dates: start: 20060101

REACTIONS (6)
  - BALANCE DISORDER [None]
  - DIPLEGIA [None]
  - FACIAL PAIN [None]
  - HYPOAESTHESIA FACIAL [None]
  - VISION BLURRED [None]
  - VISUAL IMPAIRMENT [None]
